FAERS Safety Report 10414841 (Version 1)
Quarter: 2014Q2

REPORT INFORMATION
  Report Type: Spontaneous
  Country: US (occurrence: None)
  Receive Date: 20140604
  Receipt Date: 20140604
  Transmission Date: 20141212
  Serious: No
  Sender: FDA-Public Use
  Company Number: 163-POMAL-14035046

PATIENT
  Age: 60 Year
  Sex: Female

DRUGS (5)
  1. POMALYST (POMALIDOMIDE) (4 MILLIGRAM, CAPSULES) [Suspect]
     Indication: PLASMA CELL MYELOMA
     Dosage: 21 IN 21 D
     Route: 048
     Dates: start: 20131014
  2. SOMA(CARISOPRODOL)(UNKNOWN) [Concomitant]
  3. MORPHINE SULFATE(MORPHINE SULFATE)(UNKNOWN) [Concomitant]
  4. VALIUM(DIAZEPAM) (UNKNOWN) [Concomitant]
  5. PERCOCET(OXYCOCET) [Concomitant]

REACTIONS (4)
  - Body height decreased [None]
  - Pneumonia [None]
  - Fatigue [None]
  - Dizziness [None]
